FAERS Safety Report 12902955 (Version 2)
Quarter: 2017Q1

REPORT INFORMATION
  Report Type: Spontaneous
  Country: US (occurrence: US)
  Receive Date: 20161102
  Receipt Date: 20170302
  Transmission Date: 20170428
  Serious: No
  Sender: FDA-Public Use
  Company Number: US-JNJFOC-20161006864

PATIENT
  Age: 86 Year
  Sex: Female
  Weight: 58.97 kg

DRUGS (3)
  1. IMODIUM MULTI-SYMPTOM RELIEF [Suspect]
     Active Substance: DIMETHICONE\LOPERAMIDE HYDROCHLORIDE
     Indication: DIARRHOEA
     Dosage: AS NEEDED, SOMETIMES TAKES ANOTHER HALF CAPLET
     Route: 048
  2. IMODIUM MULTI-SYMPTOM RELIEF [Suspect]
     Active Substance: DIMETHICONE\LOPERAMIDE HYDROCHLORIDE
     Indication: DIARRHOEA
     Dosage: AS NEEDED, SOMETIMES TAKES ANOTHER HALF CAPLET
     Route: 048
  3. PEPTO-BISMOL [Concomitant]
     Active Substance: BISMUTH SUBSALICYLATE
     Route: 065

REACTIONS (4)
  - Throat irritation [Recovered/Resolved]
  - Product packaging issue [Unknown]
  - Inappropriate schedule of drug administration [Unknown]
  - Product coating issue [Unknown]
